FAERS Safety Report 23759410 (Version 1)
Quarter: 2024Q2

REPORT INFORMATION
  Report Type: Spontaneous
  Country: US (occurrence: US)
  Receive Date: 20240418
  Receipt Date: 20240418
  Transmission Date: 20240716
  Serious: Yes (Other)
  Sender: FDA-Public Use
  Company Number: US-JNJFOC-20240432054

PATIENT
  Age: 60 Year
  Sex: Male
  Weight: 90.8 kg

DRUGS (3)
  1. SPRAVATO [Suspect]
     Active Substance: ESKETAMINE
     Indication: Major depression
     Dosage: UNSPECIFIED DOSE, 1 TOTAL DOSE
     Dates: start: 20240401, end: 20240401
  2. SPRAVATO [Suspect]
     Active Substance: ESKETAMINE
     Dosage: UNSPECIFIED DOSE, 1 TOTAL DOSE
     Dates: start: 20240404, end: 20240404
  3. SPRAVATO [Suspect]
     Active Substance: ESKETAMINE
     Dosage: UNSPECIFIED DOSE, 1 TOTAL DOSE
     Dates: start: 20240409, end: 20240409

REACTIONS (5)
  - Nightmare [Recovering/Resolving]
  - Headache [Recovering/Resolving]
  - Nausea [Recovering/Resolving]
  - Vomiting [Recovering/Resolving]
  - Anxiety [Unknown]

NARRATIVE: CASE EVENT DATE: 20240401
